FAERS Safety Report 19440070 (Version 1)
Quarter: 2021Q2

REPORT INFORMATION
  Report Type: Other
  Country: TW (occurrence: TW)
  Receive Date: 20210620
  Receipt Date: 20210620
  Transmission Date: 20210717
  Serious: Yes (Other)
  Sender: FDA-Public Use
  Company Number: TW-ROCHE-2790568

PATIENT
  Age: 62 Year
  Sex: Male
  Weight: 72 kg

DRUGS (2)
  1. TECENTRIQ [Suspect]
     Active Substance: ATEZOLIZUMAB
     Indication: NON-SMALL CELL LUNG CANCER
     Dosage: 1200 ML IN  (250 ML NORMAL SALINE) IN 250 ML IVD FOR 60 MIN ST 270 ML/HR?TECENTRIQ_LC/UC (2+1) X 6 T
     Route: 041
  2. DIPHENHYDRAMINE. [Concomitant]
     Active Substance: DIPHENHYDRAMINE
     Dosage: 1 AMPULE IVD FOR 10 MIN ST
     Route: 041

REACTIONS (2)
  - Neutropenia [Recovered/Resolved]
  - Anaemia [Not Recovered/Not Resolved]

NARRATIVE: CASE EVENT DATE: 20210311
